FAERS Safety Report 11269933 (Version 1)
Quarter: 2015Q3

REPORT INFORMATION
  Report Type: Spontaneous
  Country: US (occurrence: None)
  Receive Date: 20150713
  Receipt Date: 20150713
  Transmission Date: 20151125
  Serious: Yes (Hospitalization)
  Sender: FDA-Public Use
  Company Number: None

PATIENT
  Age: 52 Year
  Sex: Female
  Weight: 84 kg

DRUGS (2)
  1. TAXOL [Suspect]
     Active Substance: PACLITAXEL
     Dosage: TOTAL DOSE ADMINIOSTERED 96 MG
     Dates: end: 20150622
  2. CARBOPLATIN. [Suspect]
     Active Substance: CARBOPLATIN
     Dosage: TOTAL DOSE ADMINIOSTERED 156 MG
     Dates: end: 20150622

REACTIONS (2)
  - Body temperature increased [None]
  - Neutropenia [None]

NARRATIVE: CASE EVENT DATE: 20150626
